FAERS Safety Report 8094090-5 (Version None)
Quarter: 2012Q1

REPORT INFORMATION
  Report Type: 
  Country: None (occurrence: None)
  Receive Date: 20120131
  Receipt Date: 20120124
  Transmission Date: 20120608
  Serious: Yes (Hospitalization)
  Sender: FDA-Public Use
  Company Number: AU-BRISTOL-MYERS SQUIBB COMPANY-16060113

PATIENT
  Age: 29 Year
  Sex: Female
  Weight: 53 kg

DRUGS (5)
  1. METHOTREXATE [Concomitant]
  2. MOBIC [Concomitant]
  3. ORENCIA [Suspect]
     Indication: RHEUMATOID ARTHRITIS
     Dosage: LAST INFU:18AUG2011
     Route: 042
     Dates: start: 20110331, end: 20110818
  4. FOLIC ACID [Concomitant]
  5. PREDNISOLONE [Concomitant]

REACTIONS (2)
  - VAGINAL ULCERATION [None]
  - URINARY RETENTION [None]
